FAERS Safety Report 8798018 (Version 2)
Quarter: 2012Q4

REPORT INFORMATION
  Report Type: 
  Country: US (occurrence: US)
  Receive Date: 20120920
  Receipt Date: 20121210
  Transmission Date: 20130627
  Serious: Yes (Other)
  Sender: FDA-Public Use
  Company Number: US-ELI_LILLY_AND_COMPANY-US201209003868

PATIENT
  Age: 60 Year
  Sex: Male

DRUGS (12)
  1. CIALIS [Suspect]
     Indication: ERECTILE DYSFUNCTION
     Dosage: 5 mg, qd
     Route: 048
     Dates: start: 2007
  2. CIALIS [Suspect]
     Dosage: 1 DF, prn
     Dates: start: 201210
  3. SIMVASTATIN [Concomitant]
     Dosage: 40 mg, UNK
     Dates: start: 20110823
  4. LISINOPRIL [Concomitant]
     Dosage: 10 mg, qd
  5. ALEVE [Concomitant]
  6. MULTIVITAMIN [Concomitant]
     Dosage: 1 DF, qd
  7. ASPIRIN [Concomitant]
     Dosage: 81 mg, UNK
  8. ANDROGEL [Concomitant]
     Dosage: 1 DF, UNK
     Dates: start: 20120724
  9. AMBIEN [Concomitant]
     Dosage: 5 mg, qd
  10. CO Q-10 [Concomitant]
  11. FISH OIL [Concomitant]
  12. WELLBUTRIN XL [Concomitant]
     Dosage: 150 mg, qd

REACTIONS (5)
  - Retinal ischaemia [Recovered/Resolved]
  - Visual impairment [Recovered/Resolved]
  - Weight decreased [Recovered/Resolved]
  - Cyanopsia [Recovered/Resolved]
  - Ocular hyperaemia [Recovered/Resolved]
